FAERS Safety Report 18487903 (Version 2)
Quarter: 2020Q4

REPORT INFORMATION
  Report Type: Spontaneous
  Country: FR (occurrence: FR)
  Receive Date: 20201111
  Receipt Date: 20201130
  Transmission Date: 20210114
  Serious: Yes (Death, Hospitalization, Other)
  Sender: FDA-Public Use
  Company Number: FR-ASTELLAS-2020US039615

PATIENT
  Age: 30 Year
  Sex: Male

DRUGS (2)
  1. XOSPATA [Suspect]
     Active Substance: GILTERITINIB
     Indication: ACUTE MYELOID LEUKAEMIA
     Route: 048
     Dates: start: 202004
  2. DAPTOMYCINE [Concomitant]
     Active Substance: DAPTOMYCIN
     Indication: PRODUCT USED FOR UNKNOWN INDICATION
     Dosage: UNK UNK, UNKNOWN FREQ.
     Route: 065

REACTIONS (10)
  - Thrombophlebitis superficial [Recovering/Resolving]
  - COVID-19 [Not Recovered/Not Resolved]
  - Enterobacter infection [Recovering/Resolving]
  - Arthritis bacterial [Recovering/Resolving]
  - Death [Fatal]
  - Lung disorder [Recovering/Resolving]
  - Haematuria [Recovered/Resolved]
  - Mouth haemorrhage [Recovered/Resolved]
  - Thrombocytopenia [Unknown]
  - Thrombophlebitis septic [Recovering/Resolving]

NARRATIVE: CASE EVENT DATE: 20201019
